FAERS Safety Report 8518095-2 (Version None)
Quarter: 2012Q3

REPORT INFORMATION
  Report Type: 
  Country: None (occurrence: None)
  Receive Date: 20120718
  Receipt Date: 20110922
  Transmission Date: 20120928
  Serious: No
  Sender: FDA-Public Use
  Company Number: US-BRISTOL-MYERS SQUIBB COMPANY-16088627

PATIENT
  Age: 10 Year
  Sex: Male

DRUGS (2)
  1. WARFARIN SODIUM [Suspect]
  2. TYLENOL [Concomitant]
     Dosage: OTC TYLENOL

REACTIONS (1)
  - ANTICOAGULATION DRUG LEVEL BELOW THERAPEUTIC [None]
